FAERS Safety Report 23653669 (Version 4)
Quarter: 2024Q4

REPORT INFORMATION
  Report Type: Report from Study
  Country: US (occurrence: US)
  Receive Date: 20240320
  Receipt Date: 20241111
  Transmission Date: 20250115
  Serious: Yes (Hospitalization, Other)
  Sender: ABBVIE
  Company Number: US-ABBVIE-5683473

PATIENT
  Age: 32 Year
  Sex: Male
  Weight: 77.11 kg

DRUGS (7)
  1. SKYRIZI [Suspect]
     Active Substance: RISANKIZUMAB-RZAA
     Indication: Crohn^s disease
     Dosage: FORM STRENGTH: 600 MILLIGRAM
     Route: 042
     Dates: start: 20240307, end: 20240307
  2. SKYRIZI [Suspect]
     Active Substance: RISANKIZUMAB-RZAA
     Indication: Crohn^s disease
     Dosage: FORM STRENGTH: 600 MILLIGRAM
     Route: 042
     Dates: start: 202404, end: 202404
  3. SKYRIZI [Suspect]
     Active Substance: RISANKIZUMAB-RZAA
     Indication: Crohn^s disease
     Dosage: FORM STRENGTH: 600 MILLIGRAM
     Route: 042
     Dates: start: 20240530
  4. PREDNISONE [Concomitant]
     Active Substance: PREDNISONE
     Indication: Crohn^s disease
  5. FOLIC ACID [Concomitant]
     Active Substance: FOLIC ACID
     Indication: Vitamin supplementation
  6. OMEPRAZOLE [Concomitant]
     Active Substance: OMEPRAZOLE
     Indication: Gastrooesophageal reflux disease
  7. DEXTROSE C [Concomitant]
     Indication: Product used for unknown indication

REACTIONS (12)
  - Haemorrhage [Recovering/Resolving]
  - Arthralgia [Unknown]
  - Anaemia [Recovering/Resolving]
  - Haematochezia [Recovering/Resolving]
  - Dysuria [Unknown]
  - Full blood count decreased [Unknown]
  - Dizziness [Recovering/Resolving]
  - Gastrointestinal haemorrhage [Recovered/Resolved]
  - Crohn^s disease [Recovered/Resolved]
  - Presyncope [Recovering/Resolving]
  - Palpitations [Recovering/Resolving]
  - Fatigue [Not Recovered/Not Resolved]

NARRATIVE: CASE EVENT DATE: 20240101
